FAERS Safety Report 10606697 (Version 1)
Quarter: 2014Q4

REPORT INFORMATION
  Report Type: Spontaneous
  Country: US (occurrence: None)
  Receive Date: 20141124
  Receipt Date: 20141124
  Transmission Date: 20150529
  Serious: Yes (Hospitalization, Disabling, Other)
  Sender: FDA-Public Use
  Company Number: None

PATIENT
  Age: 39 Year
  Sex: Female
  Weight: 62.6 kg

DRUGS (1)
  1. ISENTRESS [Suspect]
     Active Substance: RALTEGRAVIR POTASSIUM
     Indication: PROPHYLAXIS
     Dosage: 1 TAB, TWICE DAILY, TAKEN BY MOUTH
     Route: 048
     Dates: start: 20141025, end: 20141031

REACTIONS (17)
  - Blister [None]
  - Vulvovaginal pain [None]
  - Nausea [None]
  - Rash [None]
  - Headache [None]
  - Ocular hyperaemia [None]
  - Vomiting [None]
  - Arthralgia [None]
  - Pyrexia [None]
  - Eye swelling [None]
  - Herpes virus infection [None]
  - Myalgia [None]
  - Groin pain [None]
  - Fatigue [None]
  - Eye pain [None]
  - Visual impairment [None]
  - Conjunctivitis [None]

NARRATIVE: CASE EVENT DATE: 20141113
